FAERS Safety Report 4344407-X (Version None)
Quarter: 2004Q2

REPORT INFORMATION
  Report Type: 
  Country: None (occurrence: None)
  Receive Date: 20040419
  Receipt Date: 20040405
  Transmission Date: 20050107
  Serious: Yes (Life-Threatening, Hospitalization, Disabling)
  Sender: FDA-Public Use
  Company Number: HQWYE986418MAR04

PATIENT
  Age: 54 Year
  Sex: Male

DRUGS (10)
  1. CORDARONE [Suspect]
     Indication: VENTRICULAR TACHYCARDIA
     Dosage: 200 MG 1X PER 1 DAY
     Route: 048
     Dates: start: 20001201, end: 20040217
  2. CARVEDILOL [Suspect]
     Indication: CARDIAC FAILURE
     Dosage: 6.25 MG 2X PER 1 DAY
     Route: 048
     Dates: start: 20040217, end: 20040223
  3. CARVEDILOL [Suspect]
     Indication: VENTRICULAR EXTRASYSTOLES
     Dosage: 6.25 MG 2X PER 1 DAY
     Route: 048
     Dates: start: 20040217, end: 20040223
  4. ISOPTIN [Suspect]
     Dosage: 240 MG 1X PER 1 DAY
     Route: 048
     Dates: start: 20040224
  5. LIPITOR [Concomitant]
  6. LASIX [Concomitant]
  7. SLOW-K [Concomitant]
  8. RAMIPRIL [Concomitant]
  9. ASPIRIN [Concomitant]
  10. NEO-MERCAZOLE TAB [Concomitant]

REACTIONS (18)
  - ASTHMA [None]
  - CARDIAC FAILURE [None]
  - CONDITION AGGRAVATED [None]
  - COUGH [None]
  - DRUG INTERACTION [None]
  - FACE OEDEMA [None]
  - FLUID OVERLOAD [None]
  - HAEMODIALYSIS [None]
  - HYPERTHYROIDISM [None]
  - HYPOKINESIA [None]
  - HYPOTENSION [None]
  - NEPHROPATHY [None]
  - OEDEMA PERIPHERAL [None]
  - RENAL FAILURE ACUTE [None]
  - SPUTUM PURULENT [None]
  - VENOUS PRESSURE JUGULAR INCREASED [None]
  - VENTRICULAR ARRHYTHMIA [None]
  - VENTRICULAR DYSFUNCTION [None]
